FAERS Safety Report 19630902 (Version 1)
Quarter: 2021Q3

REPORT INFORMATION
  Report Type: Spontaneous
  Country: GB (occurrence: GB)
  Receive Date: 20210729
  Receipt Date: 20210729
  Transmission Date: 20211014
  Serious: Yes (Other)
  Sender: FDA-Public Use
  Company Number: GB-MYLANLABS-2021M1045593

PATIENT
  Age: 58 Year
  Weight: 103 kg

DRUGS (3)
  1. INDAPAMID [Concomitant]
     Active Substance: INDAPAMIDE
     Indication: ILL-DEFINED DISORDER
     Dosage: UNK
  2. RAMIPRIL. [Concomitant]
     Active Substance: RAMIPRIL
     Indication: ILL-DEFINED DISORDER
     Dosage: UNK
  3. FELODIPINE. [Suspect]
     Active Substance: FELODIPINE
     Indication: HYPERTENSION
     Dosage: 2,5MG
     Route: 048
     Dates: start: 20210602, end: 20210705

REACTIONS (2)
  - Suicidal ideation [Recovering/Resolving]
  - Agitated depression [Recovering/Resolving]

NARRATIVE: CASE EVENT DATE: 20210604
